FAERS Safety Report 18557993 (Version 1)
Quarter: 2020Q4

REPORT INFORMATION
  Report Type: Spontaneous
  Country: US (occurrence: US)
  Receive Date: 20201130
  Receipt Date: 20201130
  Transmission Date: 20210114
  Serious: Yes (Death)
  Sender: FDA-Public Use
  Company Number: US-USWM, LLC-UWM202011-000052

PATIENT
  Age: 74 Year
  Sex: Male
  Weight: 86.18 kg

DRUGS (2)
  1. AMIODARONE [Concomitant]
     Active Substance: AMIODARONE
     Dosage: NOT PROVIDED
  2. NADOLOL. [Suspect]
     Active Substance: NADOLOL
     Indication: ATRIAL FLUTTER
     Dates: start: 20200916

REACTIONS (3)
  - Product use in unapproved indication [Unknown]
  - Multiple organ dysfunction syndrome [Fatal]
  - Cardiogenic shock [Fatal]

NARRATIVE: CASE EVENT DATE: 20200916
